FAERS Safety Report 4523517-8 (Version None)
Quarter: 2004Q4

REPORT INFORMATION
  Report Type: 
  Country: None (occurrence: None)
  Receive Date: 20041117
  Receipt Date: 20040728
  Transmission Date: 20050328
  Serious: Yes (Hospitalization)
  Sender: FDA-Public Use
  Company Number: DE-JNJFOC-20040707689

PATIENT
  Age: 79 Year
  Sex: Female

DRUGS (16)
  1. LEVOFLOXACIN [Suspect]
     Indication: PNEUMONIA
     Dosage: INTRAVENOUS
     Route: 042
     Dates: start: 20040310, end: 20040312
  2. LEVOFLOXACIN [Suspect]
     Indication: PNEUMONIA
     Dosage: ORAL
     Route: 048
     Dates: start: 20040313, end: 20040319
  3. MOTRIN [Concomitant]
  4. PROTONIX [Concomitant]
  5. PLAVIX [Concomitant]
  6. COREG [Concomitant]
  7. GLUCOVANCE (GLIBOMET) [Concomitant]
  8. NABUMETONE [Concomitant]
  9. AVAPRO [Concomitant]
  10. PERCOCET [Concomitant]
  11. CELEBREX [Concomitant]
  12. TYLENOL [Concomitant]
  13. ANCEF [Concomitant]
  14. ZOFRAN [Concomitant]
  15. SODIUM CHLORIDE [Concomitant]
  16. LEVOFLOXACIN [Concomitant]

REACTIONS (1)
  - CARDIAC FAILURE CONGESTIVE [None]
